FAERS Safety Report 17855868 (Version 2)
Quarter: 2020Q2

REPORT INFORMATION
  Report Type: Report from Study
  Country: GT (occurrence: GT)
  Receive Date: 20200603
  Receipt Date: 20200618
  Transmission Date: 20200714
  Serious: Yes (Other)
  Sender: FDA-Public Use
  Company Number: NVSC2020GT152404

PATIENT
  Sex: Male

DRUGS (3)
  1. ATLANSIL [Concomitant]
     Active Substance: AMIODARONE
     Indication: PRODUCT USED FOR UNKNOWN INDICATION
     Dosage: 200 MG
     Route: 065
     Dates: start: 20200320
  2. VYMADA [Suspect]
     Active Substance: SACUBITRIL\VALSARTAN
     Indication: CARDIAC DISORDER
     Dosage: 0.5 DF, BID (100MG SPLIT INTO HALF)
     Route: 065
     Dates: start: 20200320
  3. VASTAREL [Concomitant]
     Active Substance: TRIMETAZIDINE DIHYDROCHLORIDE
     Indication: PRODUCT USED FOR UNKNOWN INDICATION
     Dosage: 35 MG
     Route: 065
     Dates: start: 20200320

REACTIONS (7)
  - Age-related macular degeneration [Recovering/Resolving]
  - Blindness unilateral [Unknown]
  - Visual impairment [Unknown]
  - Uveitis [Recovering/Resolving]
  - Eye infection [Unknown]
  - Wrong technique in product usage process [Unknown]
  - Eye disorder [Unknown]
